FAERS Safety Report 14027898 (Version 2)
Quarter: 2017Q4

REPORT INFORMATION
  Report Type: Spontaneous
  Country: US (occurrence: US)
  Receive Date: 20170929
  Receipt Date: 20171030
  Transmission Date: 20180321
  Serious: No
  Sender: FDA-Public Use
  Company Number: US-VERTEX PHARMACEUTICALS-2017-005343

PATIENT
  Age: 11 Year
  Sex: Female

DRUGS (18)
  1. ALBUTEROL SULFATE. [Concomitant]
     Active Substance: ALBUTEROL SULFATE
     Indication: WHEEZING
  2. VENTOLIN HFA [Concomitant]
     Active Substance: ALBUTEROL SULFATE
     Indication: COUGH
     Dosage: 2 PUFFS EVERY 4 HRS PRN
     Route: 055
  3. ORKAMBI [Suspect]
     Active Substance: IVACAFTOR\LUMACAFTOR
     Indication: CYSTIC FIBROSIS
     Dosage: 200/250 MG, BID
     Route: 048
     Dates: start: 201612
  4. AZITHROMYCIN ANHYDROUS. [Concomitant]
     Active Substance: AZITHROMYCIN ANHYDROUS
     Dosage: 1 DOSAGE FORM, QD, ON MON, WED, FRI
     Route: 048
  5. PREVACID [Concomitant]
     Active Substance: LANSOPRAZOLE
     Dosage: 1 DOSAGE FORM, QD
     Route: 048
  6. HYPERSAL [Concomitant]
     Dosage: 1 VIAL, QD
     Route: 055
  7. LANTUS [Concomitant]
     Active Substance: INSULIN GLARGINE
     Dosage: 3 UT, QD
     Route: 058
  8. PULMOZYME [Concomitant]
     Active Substance: DORNASE ALFA
     Dosage: NEBULISE 1 VIAL DAILY
     Route: 055
  9. TOBI [Concomitant]
     Active Substance: TOBRAMYCIN
     Dosage: 1 VIAL BID EVERY ALTERNATE MONTH
     Route: 055
  10. AZELASTINE HCL [Concomitant]
     Active Substance: AZELASTINE HYDROCHLORIDE
     Dosage: 1 SPRAY IN EACH NOSTRIL DAILY, 2 SPRAYS IN EACH NOSTRIL NIGHTLY
     Route: 045
  11. TRIAMCINOLONE ACETONIDE. [Concomitant]
     Active Substance: TRIAMCINOLONE ACETONIDE
     Dosage: 1 SPRAY IN EACH NOSTRIL DAILY, 2 SPRAYS IN EACH NOSTRIL NIGHTLY
     Route: 045
  12. PROBIOTIC                          /06395501/ [Concomitant]
     Active Substance: BIFIDOBACTERIUM ANIMALIS LACTIS
     Dosage: 1 DOSAGE FORM, QD
  13. ALBUTEROL SULFATE. [Concomitant]
     Active Substance: ALBUTEROL SULFATE
     Indication: DYSPNOEA
  14. VENTOLIN HFA [Concomitant]
     Active Substance: ALBUTEROL SULFATE
     Indication: WHEEZING
  15. SYMBICORT [Concomitant]
     Active Substance: BUDESONIDE\FORMOTEROL FUMARATE DIHYDRATE
     Dosage: INHALE 2 PUFFS, BID. USE WITH SPACER
     Route: 055
  16. XYZAL [Concomitant]
     Active Substance: LEVOCETIRIZINE DIHYDROCHLORIDE
     Dosage: 1 DOSAGE FORM, BID
     Route: 048
  17. ALBUTEROL SULFATE. [Concomitant]
     Active Substance: ALBUTEROL SULFATE
     Indication: COUGH
     Dosage: NEBULISE 1 VIAL BID AND EVERY 4 HRS PRN
     Route: 055
  18. MIRALAX [Concomitant]
     Active Substance: POLYETHYLENE GLYCOL 3350
     Indication: CONSTIPATION
     Dosage: MIX 8.5 G IN 4 OUNCES LIQUID AND DRINK
     Route: 048

REACTIONS (3)
  - Pneumonia staphylococcal [Unknown]
  - Infective pulmonary exacerbation of cystic fibrosis [Recovered/Resolved]
  - Sinusitis [Recovered/Resolved]

NARRATIVE: CASE EVENT DATE: 201708
